FAERS Safety Report 12285332 (Version 3)
Quarter: 2016Q2

REPORT INFORMATION
  Report Type: Spontaneous
  Country: JP (occurrence: JP)
  Receive Date: 20160420
  Receipt Date: 20160530
  Transmission Date: 20160815
  Serious: Yes (Hospitalization)
  Sender: FDA-Public Use
  Company Number: PHJP2016JP009825

PATIENT
  Age: 80 Year
  Sex: Male

DRUGS (3)
  1. EXELON PATCH [Suspect]
     Active Substance: RIVASTIGMINE
     Dosage: 9.5 MG/24H (PATCH 10 CM2, RIVASTIGMINE BASE 18 MG)
     Route: 062
     Dates: start: 20160517
  2. EXELON PATCH [Suspect]
     Active Substance: RIVASTIGMINE
     Dosage: 4.6 MG/24H (PATCH 5 CM2, RIVASTIGMINE BASE 9 MG)
     Route: 062
     Dates: start: 20160419, end: 20160516
  3. EXELON PATCH [Suspect]
     Active Substance: RIVASTIGMINE
     Indication: DEMENTIA ALZHEIMER^S TYPE
     Dosage: 9.5 MG/24HRS (PATCH 10 CM2, RIVASTIGMINE BASE 18 MG)
     Route: 062
     Dates: end: 20160412

REACTIONS (2)
  - Streptococcal infection [Recovered/Resolved]
  - Hyperthermia [Recovered/Resolved]

NARRATIVE: CASE EVENT DATE: 20160411
